FAERS Safety Report 5304292-6 (Version None)
Quarter: 2007Q2

REPORT INFORMATION
  Report Type: 
  Country: None (occurrence: None)
  Receive Date: 20070423
  Receipt Date: 20070417
  Transmission Date: 20071010
  Serious: Yes (Life-Threatening, Hospitalization, Other)
  Sender: FDA-Public Use
  Company Number: PHHO2007NZ06618

PATIENT
  Sex: Male

DRUGS (1)
  1. CLOZARIL [Suspect]
     Indication: SCHIZOPHRENIA
     Route: 048
     Dates: start: 20030118, end: 20061201

REACTIONS (6)
  - ILEUS PARALYTIC [None]
  - NAUSEA [None]
  - OESOPHAGEAL RUPTURE [None]
  - RETCHING [None]
  - SURGERY [None]
  - VOMITING [None]
